FAERS Safety Report 8767102 (Version 3)
Quarter: 2013Q3

REPORT INFORMATION
  Report Type: Spontaneous
  Country: US (occurrence: US)
  Receive Date: 20120903
  Receipt Date: 20130730
  Transmission Date: 20140515
  Serious: Yes (Life-Threatening, Hospitalization, Other)
  Sender: FDA-Public Use
  Company Number: US-BAYER-2012-088544

PATIENT
  Age: 23 Year
  Sex: Female
  Weight: 86.17 kg

DRUGS (24)
  1. YASMIN [Suspect]
     Indication: MENSTRUAL CYCLE MANAGEMENT
     Dosage: UNK
     Dates: start: 20040121, end: 200503
  2. YASMIN [Suspect]
     Indication: DYSMENORRHOEA
     Dosage: UNK
     Dates: start: 2006
  3. YASMIN [Suspect]
     Indication: CONTRACEPTION
     Dosage: UNK
     Dates: start: 20070523, end: 2009
  4. YASMIN [Suspect]
     Indication: MENSTRUAL CYCLE MANAGEMENT
     Dosage: UNK
     Dates: start: 20071026, end: 20080608
  5. OCELLA [Suspect]
     Indication: CONTRACEPTION
     Dosage: UNK
     Dates: start: 20071018, end: 200806
  6. OCELLA [Suspect]
     Indication: CONTRACEPTION
     Dosage: UNK
     Dates: start: 20081113, end: 20090912
  7. IBUPROFEN [Concomitant]
     Dosage: AS NEEDED
  8. FROVATRIPTAN [Concomitant]
     Dosage: UNK
     Dates: start: 20090924
  9. PHENTERMINE [Concomitant]
     Indication: WEIGHT DECREASED
     Dosage: UNK
     Dates: start: 20090924
  10. PHENTERMINE [Concomitant]
     Indication: APPETITE DISORDER
  11. DEXAMETHASONE [Concomitant]
     Indication: HORMONE REPLACEMENT THERAPY
     Dosage: UNK
     Dates: start: 20090924
  12. ALBUTEROL [Concomitant]
     Indication: DYSPNOEA
     Dosage: UNK
     Dates: start: 20090924
  13. ALBUTEROL [Concomitant]
     Indication: ASTHMA
  14. AMBIEN [Concomitant]
     Indication: INSOMNIA
     Dosage: UNK
     Dates: start: 20090929
  15. AMBIEN [Concomitant]
     Indication: INSOMNIA
  16. FLUTICASONE [Concomitant]
     Indication: DYSPNOEA
     Dosage: UNK
     Dates: start: 20090924
  17. FLUTICASONE [Concomitant]
     Indication: ASTHMA
  18. EPINEPHRINE [Concomitant]
     Indication: RASH
     Dosage: UNK
     Dates: start: 20090924
  19. EPINEPHRINE [Concomitant]
     Indication: RASH
     Dosage: UNK
     Dates: start: 20091014
  20. EPINEPHRINE [Concomitant]
     Indication: RASH
     Dosage: UNK
     Dates: start: 20100204
  21. DOXYCYCLINE [Concomitant]
     Indication: BACTERIAL INFECTION
     Dosage: UNK
     Dates: start: 20100204, end: 20100208
  22. FAMOTIDINE [Concomitant]
  23. METOPROLOL [Concomitant]
     Dosage: UNK
  24. TOPROL XL [Concomitant]

REACTIONS (30)
  - Cerebrovascular accident [Recovered/Resolved]
  - Cardiac arrest [None]
  - Supraventricular tachycardia [None]
  - Ovarian cyst [None]
  - Gallbladder disorder [None]
  - Emotional distress [None]
  - Hepatic enzyme increased [None]
  - Palpitations [None]
  - Arrhythmia [None]
  - Bradycardia [None]
  - Tachycardia [None]
  - Syncope [Recovered/Resolved]
  - Blood pressure increased [None]
  - General physical health deterioration [Recovered/Resolved]
  - Injury [Recovered/Resolved]
  - Anxiety [None]
  - Pain [None]
  - Pelvic pain [None]
  - Chest pain [None]
  - Insomnia [None]
  - Dyspnoea [Recovered/Resolved]
  - Ventricular tachycardia [None]
  - Atrial fibrillation [None]
  - Atrial flutter [None]
  - Headache [Recovered/Resolved]
  - Presyncope [None]
  - Nausea [Recovered/Resolved]
  - Oedema [Recovered/Resolved]
  - Panic disorder [None]
  - Cholecystitis chronic [None]
